FAERS Safety Report 24552927 (Version 1)
Quarter: 2024Q4

REPORT INFORMATION
  Report Type: Spontaneous
  Country: JP (occurrence: JP)
  Receive Date: 20241027
  Receipt Date: 20241027
  Transmission Date: 20250114
  Serious: Yes (Other)
  Sender: SANOFI AVENTIS
  Company Number: JP-SA-2024SA304662

PATIENT
  Sex: Female

DRUGS (1)
  1. DUPIXENT [Suspect]
     Active Substance: DUPILUMAB
     Indication: Product used for unknown indication
     Route: 058

REACTIONS (4)
  - Retinal artery occlusion [Not Recovered/Not Resolved]
  - Hypoaesthesia [Recovering/Resolving]
  - Arteriosclerosis [Unknown]
  - Eosinophil count increased [Unknown]
